FAERS Safety Report 9118005 (Version 1)
Quarter: 2013Q1

REPORT INFORMATION
  Report Type: Report from Study
  Country: BR (occurrence: BR)
  Receive Date: 20130208
  Receipt Date: 20130208
  Transmission Date: 20140127
  Serious: Yes (Other)
  Sender: FDA-Public Use
  Company Number: BR-PFIZER INC-2013049337

PATIENT
  Age: 70 Year
  Sex: 0

DRUGS (2)
  1. LOSARTAN POTASSIUM [Suspect]
     Dosage: UNK
  2. SPIRONOLACTONE [Interacting]
     Dosage: UNK

REACTIONS (2)
  - Drug interaction [Unknown]
  - Hyperkalaemia [Unknown]
